FAERS Safety Report 18391641 (Version 4)
Quarter: 2022Q3

REPORT INFORMATION
  Report Type: Spontaneous
  Country: JP (occurrence: JP)
  Receive Date: 20201016
  Receipt Date: 20220713
  Transmission Date: 20221027
  Serious: Yes (Hospitalization, Other)
  Sender: FDA-Public Use
  Company Number: JP-GSKNCCC-CASE-01055343_AE-35323

PATIENT

DRUGS (1)
  1. EPZICOM [Suspect]
     Active Substance: ABACAVIR SULFATE\LAMIVUDINE
     Indication: HIV infection
     Dosage: UNK UNK, QD
     Route: 048

REACTIONS (3)
  - Fracture [Unknown]
  - Cervical spinal stenosis [Unknown]
  - Fall [Unknown]
